FAERS Safety Report 4606574-X (Version None)
Quarter: 2005Q2

REPORT INFORMATION
  Report Type: 
  Country: None (occurrence: None)
  Receive Date: 20050223
  Receipt Date: 20040716
  Transmission Date: 20051028
  Serious: Yes (Life-Threatening, Hospitalization)
  Sender: FDA-Public Use
  Company Number: WAES 0407USA01465

PATIENT
  Age: 66 Year
  Sex: Female
  Weight: 91.6266 kg

DRUGS (10)
  1. ZOCOR [Suspect]
     Indication: DYSLIPIDAEMIA
     Dosage: 40 MG/DAILY/PO
     Route: 048
  2. GLUCOPHAGE [Concomitant]
  3. HYDRODIURIL [Concomitant]
  4. LOTENSIN [Concomitant]
  5. NICOTROL [Concomitant]
  6. VALIUM [Concomitant]
  7. VICODIN [Concomitant]
  8. WELCHOL [Concomitant]
  9. INSULIN [Concomitant]
  10. IRON (UNSPECIFIED) [Concomitant]

REACTIONS (1)
  - RHABDOMYOLYSIS [None]
